FAERS Safety Report 21496160 (Version 1)
Quarter: 2022Q4

REPORT INFORMATION
  Report Type: Report from Study
  Country: US (occurrence: US)
  Receive Date: 20221022
  Receipt Date: 20221022
  Transmission Date: 20230112
  Serious: No
  Sender: FDA-Public Use
  Company Number: US-ABBVIE-4158673

PATIENT
  Age: 57 Year
  Sex: Female

DRUGS (4)
  1. SKYRIZI [Suspect]
     Active Substance: RISANKIZUMAB-RZAA
     Indication: Psoriasis
     Dosage: WEEK FOUR
     Route: 058
     Dates: start: 202203, end: 202203
  2. SKYRIZI [Suspect]
     Active Substance: RISANKIZUMAB-RZAA
     Dosage: WEEK ZERO
     Route: 058
     Dates: start: 202202, end: 202202
  3. SKYRIZI [Suspect]
     Active Substance: RISANKIZUMAB-RZAA
     Route: 058
  4. DUPIXENT [Concomitant]
     Active Substance: DUPILUMAB
     Indication: Product used for unknown indication

REACTIONS (6)
  - Gait inability [Unknown]
  - Skin plaque [Unknown]
  - Pain in extremity [Unknown]
  - Arthralgia [Unknown]
  - Therapeutic product effect incomplete [Unknown]
  - Psoriasis [Unknown]

NARRATIVE: CASE EVENT DATE: 20221005
